FAERS Safety Report 17750684 (Version 1)
Quarter: 2020Q2

REPORT INFORMATION
  Report Type: Spontaneous
  Country: FR (occurrence: FR)
  Receive Date: 20200506
  Receipt Date: 20200506
  Transmission Date: 20200714
  Serious: Yes (Life-Threatening)
  Sender: FDA-Public Use
  Company Number: NVSC2020FR120902

PATIENT
  Age: 36 Year
  Sex: Female

DRUGS (6)
  1. MIRTAZAPINE. [Suspect]
     Active Substance: MIRTAZAPINE
     Indication: POISONING DELIBERATE
     Dosage: 930 MG, ONCE/SINGLE
     Route: 048
     Dates: start: 20200122, end: 20200122
  2. LEPTICUR [Suspect]
     Active Substance: TROPATEPINE HYDROCHLORIDE
     Indication: POISONING DELIBERATE
     Dosage: 310 MG, ONCE/SINGLE
     Route: 048
     Dates: start: 20200122, end: 20200122
  3. TEGRETOL [Suspect]
     Active Substance: CARBAMAZEPINE
     Indication: POISONING DELIBERATE
     Dosage: 16 G, ONCE/SINGLE
     Route: 048
     Dates: start: 20200122, end: 20200122
  4. CLOZAPINE. [Suspect]
     Active Substance: CLOZAPINE
     Indication: POISONING DELIBERATE
     Dosage: 4.2 G, ONCE/SINGLE
     Route: 048
     Dates: start: 20200122, end: 20200122
  5. CLOMIPRAMINE [Suspect]
     Active Substance: CLOMIPRAMINE
     Indication: POISONING DELIBERATE
     Dosage: 6.75 G, ONCE/SINGLE
     Route: 048
     Dates: start: 20200122, end: 20200122
  6. LORAZEPAM. [Suspect]
     Active Substance: LORAZEPAM
     Indication: POISONING DELIBERATE
     Dosage: 150 MG, ONCE/SINGLE
     Route: 048
     Dates: start: 20200122, end: 20200122

REACTIONS (3)
  - Ventricular extrasystoles [Recovered/Resolved]
  - Serotonin syndrome [Recovering/Resolving]
  - Disturbance in attention [Recovering/Resolving]

NARRATIVE: CASE EVENT DATE: 20200122
